FAERS Safety Report 4649544-8 (Version None)
Quarter: 2005Q2

REPORT INFORMATION
  Report Type: 
  Country: None (occurrence: None)
  Receive Date: 20050331
  Receipt Date: 20050117
  Transmission Date: 20051028
  Serious: No
  Sender: FDA-Public Use
  Company Number: 05P-163-0286879-00

PATIENT
  Age: 58 Year
  Sex: Female
  Weight: 141 kg

DRUGS (10)
  1. HUMIRA [Suspect]
     Indication: RHEUMATOID ARTHRITIS
     Dosage: 40 MG, 1 IN 1 D, SUBCUTANEOUS
     Route: 058
     Dates: start: 20041001, end: 20041211
  2. METHOTREXATE SODIUM [Concomitant]
  3. MELOXICAM [Concomitant]
  4. VERAPAMIL [Concomitant]
  5. FOLIC ACID [Concomitant]
  6. LEXAPRO [Concomitant]
  7. BUPROPION HYDROCHLORIDE [Concomitant]
  8. LEVOTHYROXINE SODIUM [Concomitant]
  9. DARVOCET [Concomitant]
  10. LANSOPRAZOLE [Concomitant]

REACTIONS (1)
  - PNEUMONIA [None]
